FAERS Safety Report 5792806-1 (Version None)
Quarter: 2008Q2

REPORT INFORMATION
  Report Type: 
  Country: None (occurrence: None)
  Receive Date: 20080627
  Receipt Date: 20080623
  Transmission Date: 20081010
  Serious: No
  Sender: FDA-Public Use
  Company Number: US-BAYER-200826273NA

PATIENT
  Age: 31 Year
  Sex: Female

DRUGS (1)
  1. MIRENA [Suspect]
     Indication: CONTRACEPTION
     Route: 015
     Dates: start: 20070914, end: 20080121

REACTIONS (5)
  - ENDOMETRITIS [None]
  - GENITAL PAIN [None]
  - IUCD COMPLICATION [None]
  - UTERINE SPASM [None]
  - VAGINAL HAEMORRHAGE [None]
